FAERS Safety Report 8660571 (Version 4)
Quarter: 2014Q2

REPORT INFORMATION
  Report Type: Report from Study
  Country: FR (occurrence: FR)
  Receive Date: 20120711
  Receipt Date: 20140609
  Transmission Date: 20141212
  Serious: Yes (Death, Life-Threatening, Hospitalization)
  Sender: FDA-Public Use
  Company Number: FR-BRISTOL-MYERS SQUIBB COMPANY-16734949

PATIENT
  Age: 46 Year
  Sex: Male
  Weight: 67 kg

DRUGS (2)
  1. CISPLATIN [Suspect]
     Indication: NON-SMALL CELL LUNG CANCER STAGE III
     Dosage: ON D1-8,NOT RECEIVED ON 21MAY12,LAST DOSE ON 15JUN12
     Route: 042
     Dates: start: 20120514
  2. ETOPOSIDE [Suspect]
     Indication: NON-SMALL CELL LUNG CANCER STAGE III
     Dosage: LAST DOSE ON 15JUN12
     Route: 042
     Dates: start: 20120514

REACTIONS (5)
  - Malignant neoplasm progression [Fatal]
  - Pulmonary haemorrhage [Recovered/Resolved]
  - Bone marrow failure [Recovered/Resolved]
  - Anaemia [Unknown]
  - Dysphagia [Not Recovered/Not Resolved]
